FAERS Safety Report 15440149 (Version 1)
Quarter: 2018Q3

REPORT INFORMATION
  Report Type: Spontaneous
  Country: ES (occurrence: ES)
  Receive Date: 20180928
  Receipt Date: 20180928
  Transmission Date: 20181010
  Serious: Yes (Other)
  Sender: FDA-Public Use
  Company Number: ES-BAYER-2018-181294

PATIENT
  Age: 65 Year
  Sex: Female
  Weight: 71.5 kg

DRUGS (13)
  1. ADIRO 100 MG [Suspect]
     Active Substance: ASPIRIN
     Indication: HYPERTENSION
     Dosage: 100 MG, UNK
     Route: 048
     Dates: start: 20180516
  2. ARTEDIL [Suspect]
     Active Substance: MANIDIPINE HYDROCHLORIDE
     Indication: HYPERTENSION
     Dosage: 20 MG, UNK
     Route: 048
     Dates: start: 20151221
  3. DIOVAN [Suspect]
     Active Substance: VALSARTAN
     Indication: HYPERTENSION
     Dosage: 80 MG, UNK
     Route: 048
     Dates: start: 20170606
  4. PRANDIN [Concomitant]
     Active Substance: REPAGLINIDE
     Indication: DIABETES MELLITUS
     Dosage: 1 MG, UNK
     Route: 048
  5. LATANOPROST. [Concomitant]
     Active Substance: LATANOPROST
     Indication: GLAUCOMA
     Dosage: 1 DF, UNK
     Route: 047
  6. HIDROFEROL [Concomitant]
     Active Substance: CALCIFEDIOL
     Dosage: 1 DF, UNK
  7. SUTRIL [Concomitant]
     Active Substance: TORSEMIDE
     Indication: HYPERTENSION
     Dosage: 5 MG, UNK
     Route: 048
     Dates: start: 20170419
  8. LORMETAZEPAM [Concomitant]
     Active Substance: LORMETAZEPAM
     Dosage: 2 MG, UNK
     Route: 048
  9. EMCONCOR COR [Concomitant]
     Active Substance: BISOPROLOL
     Indication: HYPERTENSION
     Dosage: 2.5 MG, UNK
     Route: 048
     Dates: start: 20160926
  10. XUMADOL [Concomitant]
     Dosage: UNK
     Route: 048
  11. EPOETIN NOS [Concomitant]
     Active Substance: ERYTHROPOIETIN
     Dosage: 1 DF, UNK
  12. VYTORIN [Concomitant]
     Active Substance: EZETIMIBE\SIMVASTATIN
     Dosage: 1 DF, UNK
     Route: 048
  13. OMEPRAZOL [Concomitant]
     Active Substance: OMEPRAZOLE
     Dosage: 20 MG, UNK
     Route: 048

REACTIONS (1)
  - Renal impairment [Recovering/Resolving]

NARRATIVE: CASE EVENT DATE: 20180701
